FAERS Safety Report 4282959-9 (Version None)
Quarter: 2004Q1

REPORT INFORMATION
  Report Type: 
  Country: None (occurrence: None)
  Receive Date: 20040130
  Receipt Date: 20031216
  Transmission Date: 20041129
  Serious: Yes (Hospitalization)
  Sender: FDA-Public Use
  Company Number: PHBS2003BE14061

PATIENT
  Age: 78 Year
  Sex: Female

DRUGS (15)
  1. EXELON [Suspect]
     Indication: DEMENTIA ALZHEIMER'S TYPE
     Dosage: 1.5 MG, BID
     Route: 048
     Dates: start: 20030401
  2. EXELON [Suspect]
     Dosage: 3 MG, BID
     Route: 048
     Dates: start: 20030501
  3. EXELON [Suspect]
     Dosage: 4.5 MG, BID
     Route: 048
     Dates: start: 20030901
  4. REMINYL [Concomitant]
     Dosage: 4 MG, BID
     Route: 065
  5. REMINYL [Concomitant]
     Dosage: 8 MG, BID
     Route: 065
  6. REMINYL [Concomitant]
     Dosage: 12 MG, BID
     Route: 065
  7. MICARDIS [Concomitant]
     Route: 065
  8. ELTHYRONE [Concomitant]
     Route: 065
  9. ASAFLOW [Concomitant]
     Route: 065
  10. FUROSEMIDE [Concomitant]
     Route: 065
  11. MOTILIUM [Concomitant]
     Route: 065
  12. DUPHALAC [Concomitant]
     Route: 065
  13. LORAMET [Concomitant]
     Route: 065
  14. ARTELAC [Concomitant]
     Route: 065
  15. MIACALCIC [Concomitant]
     Dosage: UNK, QD
     Route: 065

REACTIONS (18)
  - ALANINE AMINOTRANSFERASE INCREASED [None]
  - AMNESIA [None]
  - APHASIA [None]
  - ASPARTATE AMINOTRANSFERASE INCREASED [None]
  - ATHEROSCLEROSIS [None]
  - BLOOD AMYLASE INCREASED [None]
  - CAROTID ARTERY ATHEROMA [None]
  - CEREBRAL ISCHAEMIA [None]
  - CONFUSIONAL STATE [None]
  - DEPRESSION [None]
  - DIARRHOEA [None]
  - FACIAL PARESIS [None]
  - HEADACHE [None]
  - HEPATIC ENZYME INCREASED [None]
  - LIPASE INCREASED [None]
  - LOSS OF CONSCIOUSNESS [None]
  - PANCREATIC ENZYMES INCREASED [None]
  - SYNCOPE [None]
